FAERS Safety Report 4907630-9 (Version None)
Quarter: 2006Q1

REPORT INFORMATION
  Report Type: 
  Country: None (occurrence: None)
  Receive Date: 20060210
  Receipt Date: 20050408
  Transmission Date: 20060701
  Serious: Yes (Hospitalization)
  Sender: FDA-Public Use
  Company Number: US-MERCK-0504USA01631

PATIENT
  Age: 53 Year
  Sex: Female
  Weight: 114 kg

DRUGS (3)
  1. VIOXX [Suspect]
     Indication: ARTHRITIS
     Route: 048
     Dates: start: 19990501, end: 20010816
  2. CARDIZEM [Concomitant]
     Route: 065
  3. ASPIRIN [Concomitant]
     Route: 065

REACTIONS (19)
  - ANAEMIA [None]
  - ANXIETY [None]
  - ARTHRALGIA [None]
  - ASTHENIA [None]
  - BLOOD TRIGLYCERIDES INCREASED [None]
  - CARDIOVASCULAR DISORDER [None]
  - DEPRESSION [None]
  - DRY MOUTH [None]
  - EUSTACHIAN TUBE DYSFUNCTION [None]
  - FATIGUE [None]
  - FEELING COLD [None]
  - HAEMATOCHEZIA [None]
  - HAEMORRHOIDS [None]
  - INSOMNIA [None]
  - MYOCARDIAL INFARCTION [None]
  - NEPHROLITHIASIS [None]
  - PAIN IN EXTREMITY [None]
  - STRESS [None]
  - VERTIGO [None]
